FAERS Safety Report 11852963 (Version 1)
Quarter: 2015Q4

REPORT INFORMATION
  Report Type: Spontaneous
  Country: FR (occurrence: FR)
  Receive Date: 20151218
  Receipt Date: 20151218
  Transmission Date: 20160305
  Serious: Yes (Death, Other)
  Sender: FDA-Public Use
  Company Number: FR-MEDTRONIC-1045671

PATIENT
  Age: 49 Year
  Sex: Male

DRUGS (2)
  1. BACLOFEN UNKNOWN [Suspect]
     Active Substance: BACLOFEN
     Indication: ALCOHOLISM
     Dates: start: 20140507
  2. BACLOFEN UNKNOWN [Suspect]
     Active Substance: BACLOFEN
     Dates: end: 20141213

REACTIONS (5)
  - Completed suicide [Fatal]
  - Stress [Unknown]
  - Carbohydrate deficient transferrin increased [Unknown]
  - Drug ineffective [Unknown]
  - Gamma-glutamyltransferase increased [Unknown]

NARRATIVE: CASE EVENT DATE: 201410
